FAERS Safety Report 4765493-9 (Version None)
Quarter: 2005Q3

REPORT INFORMATION
  Report Type: 
  Country: None (occurrence: None)
  Receive Date: 20050912
  Receipt Date: 20050901
  Transmission Date: 20060218
  Serious: Yes (Other)
  Sender: FDA-Public Use
  Company Number: US-JNJFOC-20050900228

PATIENT
  Sex: Female

DRUGS (24)
  1. INFLIXIMAB [Suspect]
     Indication: RHEUMATOID ARTHRITIS
     Route: 042
  2. METHOTREXATE [Concomitant]
  3. PREDNISONE TAB [Concomitant]
  4. AMBIEN [Concomitant]
     Dosage: 5 MG AT BEDTIME
  5. MIACALCIN [Concomitant]
  6. COUMADIN [Concomitant]
  7. FOLIC ACID [Concomitant]
  8. MICARDIS [Concomitant]
  9. MULTI-VITAMIN [Concomitant]
  10. MULTI-VITAMIN [Concomitant]
  11. MULTI-VITAMIN [Concomitant]
  12. MULTI-VITAMIN [Concomitant]
  13. MULTI-VITAMIN [Concomitant]
  14. MULTI-VITAMIN [Concomitant]
  15. MULTI-VITAMIN [Concomitant]
  16. MULTI-VITAMIN [Concomitant]
  17. POTASSIUM [Concomitant]
  18. LIPITOR [Concomitant]
  19. RANITIDINE [Concomitant]
  20. FUROSEMIDE [Concomitant]
  21. METOPROLOL [Concomitant]
  22. AMIODARONE [Concomitant]
  23. ACTONEL [Concomitant]
  24. CALCIUM + D [Concomitant]

REACTIONS (1)
  - BREAST CANCER [None]
